FAERS Safety Report 6134757-9 (Version None)
Quarter: 2009Q1

REPORT INFORMATION
  Report Type: 
  Country: None (occurrence: None)
  Receive Date: 20090325
  Receipt Date: 20090311
  Transmission Date: 20090719
  Serious: Yes (Hospitalization)
  Sender: FDA-Public Use
  Company Number: 2008-170251-NL

PATIENT
  Age: 25 Year
  Sex: Female

DRUGS (1)
  1. MARVELON [Suspect]
     Indication: POLYCYSTIC OVARIES
     Dosage: DF ORAL
     Route: 048
     Dates: start: 20060801, end: 20071230

REACTIONS (8)
  - ABDOMINAL PAIN UPPER [None]
  - DIABETES MELLITUS [None]
  - HYPERCOAGULATION [None]
  - HYPERLIPIDAEMIA [None]
  - INFLAMMATION [None]
  - NASOPHARYNGITIS [None]
  - PAIN [None]
  - PORTAL VEIN THROMBOSIS [None]
